FAERS Safety Report 24408803 (Version 1)
Quarter: 2024Q4

REPORT INFORMATION
  Report Type: Spontaneous
  Country: US (occurrence: US)
  Receive Date: 20241007
  Receipt Date: 20241007
  Transmission Date: 20250114
  Serious: Yes (Other)
  Sender: RECKITT BENCKISER
  Company Number: US-INDIVIOR EUROPE LIMITED-INDV-145937-2024

PATIENT
  Sex: Male

DRUGS (2)
  1. SUBLOCADE [Suspect]
     Active Substance: BUPRENORPHINE
     Indication: Product used for unknown indication
     Dosage: UNK, QMO
     Route: 058
     Dates: start: 2024
  2. SUBLOCADE [Suspect]
     Active Substance: BUPRENORPHINE

REACTIONS (1)
  - Injection site erosion [Unknown]

NARRATIVE: CASE EVENT DATE: 20240101
